FAERS Safety Report 24433347 (Version 2)
Quarter: 2025Q2

REPORT INFORMATION
  Report Type: Spontaneous
  Country: US (occurrence: US)
  Receive Date: 20241014
  Receipt Date: 20250627
  Transmission Date: 20250716
  Serious: Yes (Hospitalization, Other)
  Sender: SANOFI AVENTIS
  Company Number: US-SA-2024SA292726

PATIENT
  Age: 59 Year
  Sex: Female

DRUGS (2)
  1. DUPIXENT [Suspect]
     Active Substance: DUPILUMAB
     Indication: Asthma
     Route: 058
     Dates: start: 20240924, end: 20240924
  2. DUPIXENT [Suspect]
     Active Substance: DUPILUMAB
     Dosage: 300 MG, QOW
     Route: 058
     Dates: start: 20241008

REACTIONS (4)
  - Pulmonary oedema [Recovering/Resolving]
  - Dyspnoea [Recovering/Resolving]
  - Loss of personal independence in daily activities [Unknown]
  - Dyspnoea [Unknown]

NARRATIVE: CASE EVENT DATE: 20240101
